FAERS Safety Report 7953797-8 (Version None)
Quarter: 2011Q4

REPORT INFORMATION
  Report Type: 
  Country: None (occurrence: None)
  Receive Date: 20111202
  Receipt Date: 20111124
  Transmission Date: 20120403
  Serious: Yes (Other)
  Sender: FDA-Public Use
  Company Number: FR-JNJFOC-20111006703

PATIENT
  Sex: Male

DRUGS (2)
  1. MICONAZOLE [Suspect]
     Route: 065
  2. MICONAZOLE [Suspect]
     Indication: PRODUCT USED FOR UNKNOWN INDICATION
     Route: 065

REACTIONS (3)
  - PRODUCT CONTAMINATION PHYSICAL [None]
  - ORAL DISCOMFORT [None]
  - STOMATITIS [None]
